FAERS Safety Report 5792134-4 (Version None)
Quarter: 2008Q2

REPORT INFORMATION
  Report Type: 
  Country: None (occurrence: None)
  Receive Date: 20080626
  Receipt Date: 20080612
  Transmission Date: 20081010
  Serious: Yes (Other)
  Sender: FDA-Public Use
  Company Number: PHBS2008US04876

PATIENT
  Age: 61 Year
  Sex: Female

DRUGS (2)
  1. ZOLEDRONIC ACID [Suspect]
     Indication: METASTASES TO BONE
     Dosage: 4 MG, Q3W
     Route: 042
  2. FLUOROPYRIMIDINE [Concomitant]
     Indication: BREAST CANCER METASTATIC
     Route: 048

REACTIONS (5)
  - ARTHRALGIA [None]
  - GINGIVAL DISORDER [None]
  - HEADACHE [None]
  - OSTEONECROSIS [None]
  - TOOTH EXTRACTION [None]
